FAERS Safety Report 22039733 (Version 1)
Quarter: 2023Q1

REPORT INFORMATION
  Report Type: Spontaneous
  Country: IT (occurrence: IT)
  Receive Date: 20230227
  Receipt Date: 20230227
  Transmission Date: 20230418
  Serious: Yes (Other)
  Sender: FDA-Public Use
  Company Number: IT-MYLANLABS-2023M1021097

PATIENT
  Sex: Female

DRUGS (1)
  1. CLARITHROMYCIN [Suspect]
     Active Substance: CLARITHROMYCIN
     Indication: Bronchitis
     Dosage: 500 MILLIGRAM,BID EVERY 12 HOURS
     Route: 065

REACTIONS (5)
  - Deafness [Unknown]
  - Cough [Unknown]
  - Dysgeusia [Unknown]
  - Insomnia [Unknown]
  - Drug ineffective [Unknown]
